FAERS Safety Report 9686516 (Version 2)
Quarter: 2013Q4

REPORT INFORMATION
  Report Type: Spontaneous
  Country: FR (occurrence: None)
  Receive Date: 20131108
  Receipt Date: 20131227
  Transmission Date: 20140711
  Serious: Yes (Death)
  Sender: FDA-Public Use
  Company Number: 7247088

PATIENT
  Age: 87 Year
  Sex: Female

DRUGS (5)
  1. LEVOTHYROX [Suspect]
     Indication: HYPOTHYROIDISM
     Dosage: DOSAGES DECREASED TO 50 MICROGRAM
     Route: 048
  2. LAMALINE /00764901/ (LAMALINE CAFFEINE, PARACETAMOL, ATROPA BELLADONNA EXTRACT, PAPAVER SOMNIFERUM TINCTURE) [Concomitant]
  3. COUMADINE (WARFARIN SODIUM) [Concomitant]
  4. NOVONORM (REPAGLINIDE) [Concomitant]
  5. UVEDOSE (COLECALCIFEROL) (COLECALCIFEROL) [Concomitant]

REACTIONS (3)
  - Atrial tachycardia [None]
  - Cardiac failure [None]
  - Overdose [None]
